FAERS Safety Report 5664783-5 (Version None)
Quarter: 2008Q1

REPORT INFORMATION
  Report Type: 
  Country: None (occurrence: None)
  Receive Date: 20080314
  Receipt Date: 20080121
  Transmission Date: 20080703
  Serious: No
  Sender: FDA-Public Use
  Company Number: US-BAXTER-2008BH002298

PATIENT

DRUGS (2)
  1. HEPARIN SODIUM [Suspect]
     Indication: DRUG USE FOR UNKNOWN INDICATION
     Route: 065
     Dates: start: 20071201, end: 20071201
  2. HEPARIN SODIUM [Suspect]
     Dates: start: 20071201, end: 20071201

REACTIONS (1)
  - DRUG EFFECT INCREASED [None]
